FAERS Safety Report 9876689 (Version 2)
Quarter: 2014Q1

REPORT INFORMATION
  Report Type: Other
  Country: US (occurrence: US)
  Receive Date: 20140206
  Receipt Date: 20140206
  Transmission Date: 20141002
  Serious: No
  Sender: FDA-Public Use
  Company Number: US-ACORDA-ACO_37696_2013

PATIENT
  Age: 53 Year
  Sex: Female
  Weight: 61.22 kg

DRUGS (5)
  1. AMPYRA [Suspect]
     Indication: GAIT DISTURBANCE
     Dosage: 10 MG, Q 12 HRS
     Route: 048
     Dates: start: 20130725, end: 2013
  2. NEURONTIN [Concomitant]
     Indication: PRODUCT USED FOR UNKNOWN INDICATION
     Dosage: UNK
  3. CLONAZEPAM [Concomitant]
     Indication: PRODUCT USED FOR UNKNOWN INDICATION
     Dosage: 0.5 MG TO 1 MG, QHS
     Route: 048
     Dates: start: 20110303
  4. COPAXONE [Concomitant]
     Indication: PRODUCT USED FOR UNKNOWN INDICATION
     Dosage: 20 MG (1 CC), QD
     Route: 058
     Dates: start: 20110323
  5. BACLOFEN [Concomitant]
     Indication: MUSCLE SPASTICITY
     Dosage: 10 MG, QD PRN
     Route: 048
     Dates: start: 2003

REACTIONS (5)
  - Burning sensation [Not Recovered/Not Resolved]
  - Visual impairment [Unknown]
  - Back pain [Recovering/Resolving]
  - Headache [Not Recovered/Not Resolved]
  - Bladder disorder [Unknown]
